FAERS Safety Report 6271937-6 (Version None)
Quarter: 2009Q3

REPORT INFORMATION
  Report Type: 
  Country: None (occurrence: None)
  Receive Date: 20090717
  Receipt Date: 20070320
  Transmission Date: 20100115
  Serious: Yes (Hospitalization, Other)
  Sender: FDA-Public Use
  Company Number: US-ASTRAZENECA-2006UW06992

PATIENT
  Age: 16220 Day
  Sex: Female
  Weight: 116.1 kg

DRUGS (52)
  1. SEROQUEL [Suspect]
     Indication: ANXIETY
     Route: 048
     Dates: start: 19970201, end: 20050101
  2. SEROQUEL [Suspect]
     Indication: DEPRESSION
     Route: 048
     Dates: start: 19970201, end: 20050101
  3. SEROQUEL [Suspect]
     Dosage: 100 - 800 MG
     Route: 048
     Dates: start: 19971222
  4. SEROQUEL [Suspect]
     Dosage: 100 - 800 MG
     Route: 048
     Dates: start: 19971222
  5. PHEN FEN [Concomitant]
  6. ZYPREXA [Concomitant]
     Dates: start: 20020101, end: 20050101
  7. SYNTHROID [Concomitant]
  8. NORVASC [Concomitant]
  9. DEPAKOTE [Concomitant]
  10. FENOPROFEN CALCIUM [Concomitant]
  11. RANITIDINE [Concomitant]
  12. POTASSIUM CHLORIDE [Concomitant]
  13. BUMETANIDE [Concomitant]
  14. CLOTRIMAZOLE [Concomitant]
  15. PROMETHAZINE [Concomitant]
  16. NALEX-A [Concomitant]
  17. SKELAXIN [Concomitant]
  18. PROLEX DM [Concomitant]
  19. LEVAQUIN [Concomitant]
  20. AMBIEN [Concomitant]
  21. LORTAB [Concomitant]
  22. MACROBID [Concomitant]
  23. TOPAMAX [Concomitant]
  24. PLAVIX [Concomitant]
  25. ALBUTEROL [Concomitant]
  26. DOXYCYCLINE [Concomitant]
  27. HYDROXYZINE [Concomitant]
  28. PHENAZOPYRIDINE HCL TAB [Concomitant]
  29. SULFATRIM [Concomitant]
  30. FUROSEMIDE [Concomitant]
  31. WELLBUTRIN [Concomitant]
  32. VIOXX [Concomitant]
  33. ESTRATEST [Concomitant]
  34. HYDROCODONE BITARTRATE + ACETAMINOPHEN [Concomitant]
  35. MEDROXYPROGESTERONE [Concomitant]
  36. AMARYL [Concomitant]
  37. CELEBREX [Concomitant]
  38. HYZAAR [Concomitant]
     Dosage: STRENGTH - 50 / 12.5 MG, DOSE - 50 / 12.5 MG TWO TIMES A DAY
  39. PREMARIN [Concomitant]
  40. PROTONIX [Concomitant]
  41. SINGULAIR [Concomitant]
  42. NEURONTIN [Concomitant]
  43. AMITRIPTYLINE [Concomitant]
  44. GLYBURIDE [Concomitant]
     Route: 048
  45. LOTREL [Concomitant]
     Dosage: 10 - 20 MG DAILY
  46. TIZANIDINE HCL [Concomitant]
  47. LASIX [Concomitant]
  48. XANAX [Concomitant]
  49. RHINOCORT [Concomitant]
  50. METFORMIN HCL [Concomitant]
  51. LUNESTA [Concomitant]
  52. LEVOXYL [Concomitant]

REACTIONS (19)
  - ABDOMINAL WALL ABSCESS [None]
  - ADVERSE DRUG REACTION [None]
  - ARRHYTHMIA [None]
  - ASTHMA [None]
  - CARDIAC FAILURE CONGESTIVE [None]
  - CYSTITIS [None]
  - DECREASED APPETITE [None]
  - DIABETES MELLITUS [None]
  - DIABETIC RETINOPATHY [None]
  - ENCEPHALITIS [None]
  - HEADACHE [None]
  - HELICOBACTER GASTRITIS [None]
  - HYPERSENSITIVITY [None]
  - INFECTION [None]
  - PAIN IN EXTREMITY [None]
  - PNEUMONIA [None]
  - POLYNEUROPATHY [None]
  - URTICARIA [None]
  - WEIGHT INCREASED [None]
